FAERS Safety Report 9474966 (Version 1)
Quarter: 2013Q3

REPORT INFORMATION
  Report Type: Spontaneous
  Country: TR (occurrence: None)
  Receive Date: 20130820
  Receipt Date: 20130820
  Transmission Date: 20140515
  Serious: Yes (Hospitalization)
  Sender: FDA-Public Use
  Company Number: 7228592

PATIENT
  Age: 5 Year
  Sex: Female

DRUGS (4)
  1. SAIZEN [Suspect]
     Indication: GROWTH HORMONE DEFICIENCY
     Route: 058
     Dates: start: 20110715
  2. EUTHYROX [Suspect]
     Indication: HYPOTHYROIDISM
     Route: 048
     Dates: start: 20080410
  3. ZINC SULFATE [Suspect]
     Indication: PRODUCT USED FOR UNKNOWN INDICATION
     Route: 048
     Dates: start: 20130731, end: 20130731
  4. LUMINALETTEN [Concomitant]

REACTIONS (3)
  - Hypoglycaemia [None]
  - Hyperglycaemia [None]
  - Accidental exposure to product by child [None]
